FAERS Safety Report 10815141 (Version 1)
Quarter: 2015Q1

REPORT INFORMATION
  Report Type: Spontaneous
  Country: BE (occurrence: BE)
  Receive Date: 20150218
  Receipt Date: 20150218
  Transmission Date: 20150721
  Serious: Yes (Hospitalization)
  Sender: FDA-Public Use
  Company Number: BE-ABBVIE-14P-013-1295379-00

PATIENT
  Sex: Female

DRUGS (4)
  1. DUODOPA [Suspect]
     Active Substance: CARBIDOPA\LEVODOPA
     Dosage: DOSAGES CONTINUOUSLY MONITORED AND ADJUSTED
     Route: 050
     Dates: start: 20100107, end: 20141002
  2. DUODOPA [Suspect]
     Active Substance: CARBIDOPA\LEVODOPA
     Indication: PARKINSON^S DISEASE
     Dosage: AM DOSE= 6ML, CONTIN DOSE= 3.8ML/H DURING 16HRS, EXTRA DOSE= 2ML
     Route: 050
     Dates: start: 20090707, end: 20100107
  3. DUODOPA [Suspect]
     Active Substance: CARBIDOPA\LEVODOPA
     Dosage: AM DOSE= 4.5ML, CONTIN DOSE= 2.0ML/H DURING 16HRS, EXTRA DOSE= 1.2ML
     Route: 050
     Dates: start: 20141002, end: 20150114
  4. DUODOPA [Suspect]
     Active Substance: CARBIDOPA\LEVODOPA
     Dosage: AM DOSE=7.5ML, CD=2.2ML/H FOR 16HRS AND ED=2ML
     Route: 050
     Dates: start: 20150114

REACTIONS (5)
  - Crohn^s disease [Unknown]
  - Asthenia [Unknown]
  - Gastrointestinal inflammation [Not Recovered/Not Resolved]
  - Diarrhoea [Not Recovered/Not Resolved]
  - Faecaloma [Unknown]
